FAERS Safety Report 14982065 (Version 3)
Quarter: 2018Q3

REPORT INFORMATION
  Report Type: Spontaneous
  Country: JP (occurrence: JP)
  Receive Date: 20180607
  Receipt Date: 20180717
  Transmission Date: 20181010
  Serious: Yes (Hospitalization, Other)
  Sender: FDA-Public Use
  Company Number: JP-009507513-1805JPN002822J

PATIENT
  Sex: Male

DRUGS (1)
  1. KEYTRUDA [Suspect]
     Active Substance: PEMBROLIZUMAB
     Indication: NON-SMALL CELL LUNG CANCER
     Dosage: 200 MG, Q3W
     Route: 041
     Dates: start: 20180509, end: 20180509

REACTIONS (8)
  - Malignant neoplasm progression [Unknown]
  - Cholangitis [Recovering/Resolving]
  - Hepatobiliary disease [Unknown]
  - Pruritus [Recovering/Resolving]
  - Headache [Unknown]
  - Pyrexia [Unknown]
  - Asthma [Recovering/Resolving]
  - Blood bilirubin increased [Unknown]

NARRATIVE: CASE EVENT DATE: 201805
